FAERS Safety Report 23581951 (Version 1)
Quarter: 2024Q1

REPORT INFORMATION
  Report Type: Spontaneous
  Country: US (occurrence: US)
  Receive Date: 20240229
  Receipt Date: 20240229
  Transmission Date: 20240409
  Serious: No
  Sender: FDA-Public Use
  Company Number: US-Cardinal Health 414-NPHS-AE-23-7

PATIENT
  Age: 56 Year
  Weight: 112.5 kg

DRUGS (1)
  1. TECHNETIUM TC-99M MEDRONATE KIT [Suspect]
     Active Substance: TECHNETIUM TC-99M MEDRONATE
     Indication: Bone scan
     Route: 065
     Dates: start: 20230403, end: 20230403

REACTIONS (2)
  - Off label use [Recovered/Resolved]
  - Radioisotope uptake increased [Recovered/Resolved]

NARRATIVE: CASE EVENT DATE: 20230403
